FAERS Safety Report 4856219-9 (Version None)
Quarter: 2005Q4

REPORT INFORMATION
  Report Type: 
  Country: None (occurrence: None)
  Receive Date: 20051216
  Receipt Date: 20050426
  Transmission Date: 20060501
  Serious: Yes (Hospitalization, Other)
  Sender: FDA-Public Use
  Company Number: US-MERCK-0504USA04800

PATIENT
  Age: 49 Year
  Sex: Female
  Weight: 82 kg

DRUGS (4)
  1. VIOXX [Suspect]
     Indication: PAIN IN EXTREMITY
     Route: 048
     Dates: start: 20011201, end: 20040901
  2. TYLENOL [Concomitant]
     Route: 048
  3. ADVIL [Concomitant]
     Route: 048
  4. MOTRIN [Concomitant]
     Route: 048

REACTIONS (5)
  - CARDIAC ARREST [None]
  - CARDIAC DISORDER [None]
  - CEREBROVASCULAR ACCIDENT [None]
  - HAEMORRHAGIC STROKE [None]
  - MYOCARDIAL INFARCTION [None]
